FAERS Safety Report 23586284 (Version 1)
Quarter: 2024Q1

REPORT INFORMATION
  Report Type: Spontaneous
  Country: IT (occurrence: IT)
  Receive Date: 20240301
  Receipt Date: 20240301
  Transmission Date: 20240410
  Serious: Yes (Hospitalization)
  Sender: FDA-Public Use
  Company Number: None

PATIENT
  Age: 75 Year
  Sex: Female
  Weight: 53 kg

DRUGS (2)
  1. OXALIPLATIN [Suspect]
     Active Substance: OXALIPLATIN
     Indication: Non-Hodgkin^s lymphoma
     Dosage: OXALIPLATIN 100 MG ADMINISTERED ON 28.11.2023  ?IL / OXALIPLATIN 100 MG ADMINISTERED ON 19.12.2023?F
     Route: 042
     Dates: start: 20231128, end: 20231219
  2. GEMCITABINE [Suspect]
     Active Substance: GEMCITABINE
     Indication: Non-Hodgkin^s lymphoma
     Dosage: GEMCITABINE 1550 MG ADMINISTERED ON 28.11.2023 IL GEMCITABINE 1034 MG ADMINISTERED ON 19.12.2023?CON
     Route: 042
     Dates: start: 20231128, end: 20231219

REACTIONS (3)
  - Hypercalcaemia [Recovered/Resolved]
  - COVID-19 [Recovered/Resolved]
  - Toxicity to various agents [Unknown]

NARRATIVE: CASE EVENT DATE: 20240108
